FAERS Safety Report 6290768-4 (Version None)
Quarter: 2009Q3

REPORT INFORMATION
  Report Type: 
  Country: None (occurrence: None)
  Receive Date: 20090729
  Receipt Date: 20090729
  Transmission Date: 20100115
  Serious: No
  Sender: FDA-Public Use
  Company Number: None

PATIENT
  Age: 39 Year
  Sex: Male
  Weight: 101.6 kg

DRUGS (1)
  1. NALTREXONE HYDROCHLORIDE [Suspect]
     Indication: ALCOHOLISM
     Dosage: 50 MG EVERY DAY PO
     Route: 048
     Dates: start: 20090325, end: 20090401

REACTIONS (1)
  - ARTHRALGIA [None]
